FAERS Safety Report 8436211-8 (Version None)
Quarter: 2012Q2

REPORT INFORMATION
  Report Type: 
  Country: None (occurrence: None)
  Receive Date: 20120614
  Receipt Date: 20120604
  Transmission Date: 20120825
  Serious: Yes (Other)
  Sender: FDA-Public Use
  Company Number: US-MYLANLABS-2012S1011331

PATIENT
  Age: 45 Year
  Sex: Female
  Weight: 97.98 kg

DRUGS (52)
  1. FENTANYL-100 [Suspect]
     Dosage: Q48H
     Route: 062
     Dates: start: 20110101, end: 20120201
  2. VITAMIN D [Concomitant]
  3. MECLIZINE [Concomitant]
  4. NORVASC [Concomitant]
  5. FENTANYL-100 [Suspect]
     Dosage: Q48HR
     Route: 062
     Dates: start: 20100601, end: 20110101
  6. FENTANYL-100 [Suspect]
     Dosage: Q48HR
     Route: 062
     Dates: start: 20100601, end: 20110101
  7. FENTANYL-100 [Suspect]
     Dosage: Q48HR
     Route: 062
     Dates: start: 20100601, end: 20110101
  8. PATANOL [Concomitant]
     Dosage: EACH EYE
     Route: 031
  9. ALBUTEROL SULFATE AND IPRATROPIUM BROMIDE [Concomitant]
     Indication: CHRONIC OBSTRUCTIVE PULMONARY DISEASE
     Route: 055
  10. LEUCOVORIN CALCIUM [Concomitant]
  11. SOMA [Concomitant]
     Indication: PAIN
  12. ASPIRIN [Concomitant]
  13. BUPROPION HCL [Concomitant]
  14. ALLEGRA [Concomitant]
  15. ZONEGRAN [Concomitant]
  16. HUMALOG [Concomitant]
     Indication: DIABETES MELLITUS
     Route: 058
  17. FENTANYL-100 [Suspect]
     Indication: OSTEOARTHRITIS
     Dosage: Q72H
     Route: 062
     Dates: start: 20081101, end: 20090101
  18. FENTANYL-100 [Suspect]
     Indication: FIBROMYALGIA
     Dosage: Q72H
     Route: 062
     Dates: start: 20081101, end: 20090101
  19. FENTANYL-100 [Suspect]
     Dosage: Q48H
     Route: 062
     Dates: start: 20090601
  20. FENTANYL-100 [Suspect]
     Dosage: Q48H
     Route: 062
     Dates: start: 20091101, end: 20100601
  21. ADVAIR DISKUS 100/50 [Concomitant]
     Indication: CHRONIC OBSTRUCTIVE PULMONARY DISEASE
     Dosage: 2 PUFFS
     Route: 055
  22. TRAZODONE HCL [Concomitant]
  23. GABAPENTIN [Concomitant]
  24. HUMALOG N [Concomitant]
     Indication: DIABETES MELLITUS
  25. FENTANYL-100 [Suspect]
     Dosage: Q48H
     Route: 062
     Dates: start: 20090101, end: 20090601
  26. FENTANYL-100 [Suspect]
     Dosage: Q48H
     Route: 062
     Dates: start: 20091101, end: 20100601
  27. LEUCOVORIN CALCIUM [Concomitant]
  28. SEROQUEL [Concomitant]
  29. XANAX [Concomitant]
  30. HUMULIN R [Concomitant]
     Indication: DIABETES MELLITUS
  31. LIDOCAINE [Concomitant]
     Dosage: OINTMENT
  32. FENTANYL-100 [Suspect]
     Dosage: Q48H
     Route: 062
     Dates: start: 20091101, end: 20100601
  33. FENTANYL-100 [Suspect]
     Dosage: Q48H
     Route: 062
     Dates: start: 20110101, end: 20120201
  34. BENICAR [Concomitant]
  35. FENTANYL-100 [Suspect]
     Indication: RHEUMATOID ARTHRITIS
     Dosage: Q72H
     Route: 062
     Dates: start: 20081101, end: 20090101
  36. METHOTREXATE [Concomitant]
     Indication: RHEUMATOID ARTHRITIS
     Route: 058
  37. PROVIGIL [Concomitant]
  38. MIGQUIN [Concomitant]
     Indication: MIGRAINE
  39. RESTASIS [Concomitant]
     Dosage: EACH EYE
     Route: 031
  40. NEXIUM [Concomitant]
  41. TAMSULOSIN HCL [Concomitant]
  42. XOLAIR [Concomitant]
  43. FENTANYL-100 [Suspect]
     Dosage: Q48H
     Route: 062
     Dates: start: 20090101, end: 20090601
  44. FENTANYL-100 [Suspect]
     Dosage: Q48H
     Route: 062
     Dates: start: 20090101, end: 20090601
  45. FENTANYL-100 [Suspect]
     Dosage: Q48H
     Route: 062
     Dates: start: 20090601
  46. FENTANYL-100 [Suspect]
     Dosage: Q48H
     Route: 062
     Dates: start: 20090601
  47. FENTANYL-100 [Suspect]
     Dosage: Q48H
     Route: 062
     Dates: start: 20110101, end: 20120201
  48. ALBUTEROL [Concomitant]
     Indication: CHRONIC OBSTRUCTIVE PULMONARY DISEASE
     Route: 055
  49. POLYETHYLENE GLYCOL [Concomitant]
     Indication: CONSTIPATION
  50. ASTEPRO [Concomitant]
  51. NASONEX [Concomitant]
  52. LIPITOR [Concomitant]
     Indication: HYPERLIPIDAEMIA

REACTIONS (4)
  - MUSCLE SPASMS [None]
  - DRUG EFFECT DECREASED [None]
  - DRUG WITHDRAWAL SYNDROME [None]
  - PAIN [None]
